FAERS Safety Report 7366587-4 (Version None)
Quarter: 2011Q1

REPORT INFORMATION
  Report Type: 
  Country: None (occurrence: None)
  Receive Date: 20110309
  Receipt Date: 20110222
  Transmission Date: 20110831
  Serious: Yes (Hospitalization)
  Sender: FDA-Public Use
  Company Number: AUR-APL-2011-00762

PATIENT
  Age: 68 Year
  Sex: Female

DRUGS (18)
  1. ALBYL MINOR [Concomitant]
  2. ACETAMINOPHEN W/ CODEINE [Concomitant]
  3. METFORMIN HCL [Suspect]
     Indication: DIABETES MELLITUS
     Dosage: 2.5G-QD-ORAL
     Route: 048
     Dates: end: 20101225
  4. TRIOBE [Concomitant]
  5. PROPAVAN [Concomitant]
  6. ENALAPRIL MALEATE [Suspect]
     Indication: ESSENTIAL HYPERTENSION
     Dosage: 20MG-DAILY-
     Dates: end: 20101225
  7. INDERAL LA [Concomitant]
  8. TAVEGYL [Concomitant]
  9. MINDIAB [Concomitant]
  10. OMEPRAZOLE [Concomitant]
  11. DIAZEPAM [Concomitant]
  12. ZOLPIDEM TARTRATE [Concomitant]
  13. FURIX [Concomitant]
  14. ZYPREXA [Concomitant]
  15. LIPITOR [Suspect]
     Dosage: 20MG-QD-ORAL
     Route: 048
     Dates: end: 20101225
  16. MICARDIS [Concomitant]
  17. XENICAL [Concomitant]
  18. INDERAL [Concomitant]

REACTIONS (13)
  - BLOOD CREATINE PHOSPHOKINASE INCREASED [None]
  - RENAL FAILURE ACUTE [None]
  - HYPOPHAGIA [None]
  - HYPOGLYCAEMIA [None]
  - MYOGLOBIN BLOOD INCREASED [None]
  - RHABDOMYOLYSIS [None]
  - FATIGUE [None]
  - URINARY RETENTION [None]
  - BLOOD PARATHYROID HORMONE INCREASED [None]
  - MUSCULAR WEAKNESS [None]
  - LETHARGY [None]
  - WHEELCHAIR USER [None]
  - LACTIC ACIDOSIS [None]
